FAERS Safety Report 6764080-0 (Version None)
Quarter: 2010Q2

REPORT INFORMATION
  Report Type: 
  Country: None (occurrence: None)
  Receive Date: 20100610
  Receipt Date: 20100531
  Transmission Date: 20101027
  Serious: Yes (Hospitalization)
  Sender: FDA-Public Use
  Company Number: AU-PFIZER INC-2010057333

PATIENT
  Age: 42 Year
  Sex: Female
  Weight: 58 kg

DRUGS (3)
  1. SYNAREL [Suspect]
     Indication: IN VITRO FERTILISATION
     Dosage: 0.2 MG, 2X/DAY
     Route: 045
     Dates: start: 20100416, end: 20100502
  2. GONAL-F [Concomitant]
     Indication: INFERTILITY
     Dosage: 225 IU TO 300 IU DAILY
     Route: 058
     Dates: start: 20100423, end: 20100502
  3. GONAL-F [Concomitant]
     Dosage: UNK

REACTIONS (2)
  - CHEST PAIN [None]
  - PARAESTHESIA [None]
